FAERS Safety Report 8879737 (Version 3)
Quarter: 2013Q1

REPORT INFORMATION
  Report Type: Report from Study
  Country: JP (occurrence: JP)
  Receive Date: 20121101
  Receipt Date: 20130121
  Transmission Date: 20140127
  Serious: Yes (Other)
  Sender: FDA-Public Use
  Company Number: JP-VERTEX PHARMACEUTICAL INC.-2012-023807

PATIENT
  Age: 42 Year
  Sex: Male

DRUGS (6)
  1. VX-950 (TELAPREVIR) [Suspect]
     Indication: CHRONIC HEPATITIS C
     Dosage: 2250 MG, QD
     Route: 048
     Dates: start: 20120508, end: 20120730
  2. RIBAVIRIN [Suspect]
     Indication: CHRONIC HEPATITIS C
     Dosage: 600 MG, QD
     Route: 048
     Dates: start: 20120508, end: 20121022
  3. PEGINTRON                          /01543001/ [Suspect]
     Indication: CHRONIC HEPATITIS C
     Dosage: 60 ?G, QW
     Route: 058
     Dates: start: 20120508, end: 20120910
  4. PEGINTRON                          /01543001/ [Suspect]
     Dosage: 50 ?G, QW
     Route: 058
     Dates: start: 20120911, end: 20121016
  5. AMLODIPINE [Concomitant]
     Dosage: 2.5 MG, QD
     Route: 048
     Dates: end: 20120625
  6. SALOBEL [Concomitant]
     Dosage: 200 MG, QD
     Route: 048
     Dates: end: 20120813

REACTIONS (1)
  - Neutrophil count decreased [Recovered/Resolved]
